FAERS Safety Report 16793387 (Version 1)
Quarter: 2019Q3

REPORT INFORMATION
  Report Type: Spontaneous
  Country: US (occurrence: US)
  Receive Date: 20190911
  Receipt Date: 20190911
  Transmission Date: 20191005
  Serious: No
  Sender: FDA-Public Use
  Company Number: US-009507513-1908USA005557

PATIENT
  Age: 38 Year
  Sex: Male

DRUGS (2)
  1. REMERON SOLTAB [Suspect]
     Active Substance: MIRTAZAPINE
     Indication: SUICIDAL IDEATION
  2. REMERON SOLTAB [Suspect]
     Active Substance: MIRTAZAPINE
     Indication: DEPRESSED MOOD
     Dosage: 15 MG, EVERY NIGHT

REACTIONS (1)
  - Off label use [Unknown]
